FAERS Safety Report 5743495-3 (Version None)
Quarter: 2008Q2

REPORT INFORMATION
  Report Type: 
  Country: None (occurrence: None)
  Receive Date: 20080520
  Receipt Date: 20080515
  Transmission Date: 20081010
  Serious: Yes (Hospitalization)
  Sender: FDA-Public Use
  Company Number: US-WYE-H04120308

PATIENT
  Sex: Female
  Weight: 56.75 kg

DRUGS (1)
  1. ZOSYN [Suspect]
     Indication: PYREXIA
     Dosage: UNKNOWN EVERY 6 HOURS
     Route: 065

REACTIONS (4)
  - DIARRHOEA [None]
  - FEEDING DISORDER [None]
  - HAEMATOCHEZIA [None]
  - PNEUMONIA [None]
